FAERS Safety Report 8025710-9 (Version None)
Quarter: 2012Q1

REPORT INFORMATION
  Report Type: 
  Country: None (occurrence: None)
  Receive Date: 20120105
  Receipt Date: 20110406
  Transmission Date: 20120608
  Serious: No
  Sender: FDA-Public Use
  Company Number: US-ABBOTT-10P-163-0655036-00

PATIENT
  Sex: Female

DRUGS (3)
  1. SYNTHROID [Suspect]
     Dosage: 50MCG X 3 TABLETS/DAY
     Dates: start: 20100709
  2. SYNTHROID [Suspect]
     Indication: PRODUCT USED FOR UNKNOWN INDICATION
     Dosage: 50MCG X 2.5 TABLETS/DAY
  3. SYNTHROID [Suspect]
     Dosage: 50MCG X 1.5 TABLETS/DAY
     Dates: start: 20100626

REACTIONS (10)
  - HYPERHIDROSIS [None]
  - ALOPECIA [None]
  - PRODUCT QUALITY ISSUE [None]
  - DIARRHOEA [None]
  - VOMITING [None]
  - CONJUNCTIVAL HAEMORRHAGE [None]
  - HEADACHE [None]
  - BLOOD THYROID STIMULATING HORMONE DECREASED [None]
  - BLOOD THYROID STIMULATING HORMONE ABNORMAL [None]
  - THINKING ABNORMAL [None]
